FAERS Safety Report 24814610 (Version 1)
Quarter: 2025Q1

REPORT INFORMATION
  Report Type: Spontaneous
  Country: US (occurrence: None)
  Receive Date: 20250106
  Receipt Date: 20250106
  Transmission Date: 20250408
  Serious: Yes (Death)
  Sender: FDA-CTU
  Company Number: None

PATIENT
  Age: 71 Year
  Sex: Male

DRUGS (1)
  1. LENALIDOMIDE [Suspect]
     Active Substance: LENALIDOMIDE
     Indication: Plasma cell myeloma
     Dosage: FREQUENCY : DAILY;?
     Route: 048
     Dates: start: 20240610, end: 20241212

REACTIONS (7)
  - Acute respiratory failure [None]
  - Metabolic acidosis [None]
  - Lactic acidosis [None]
  - Cardio-respiratory arrest [None]
  - Acute myocardial infarction [None]
  - Septic shock [None]
  - Pneumonia respiratory syncytial viral [None]

NARRATIVE: CASE EVENT DATE: 20241212
